FAERS Safety Report 5273149-1 (Version None)
Quarter: 2007Q1

REPORT INFORMATION
  Report Type: 
  Country: None (occurrence: None)
  Receive Date: 20070322
  Receipt Date: 20070315
  Transmission Date: 20070707
  Serious: Yes (Death, Hospitalization)
  Sender: FDA-Public Use
  Company Number: DK-BOEHRINGER INGELHEIM PHARMACEUTICALS, INC.-2007-SW-00114DB

PATIENT
  Sex: Male

DRUGS (2)
  1. SIFROL TAB [Suspect]
     Indication: RESTLESS LEGS SYNDROME
     Dates: start: 20061121, end: 20070105
  2. OXYGEN [Concomitant]
     Indication: CHRONIC OBSTRUCTIVE PULMONARY DISEASE

REACTIONS (1)
  - CHRONIC OBSTRUCTIVE PULMONARY DISEASE [None]
